FAERS Safety Report 13142881 (Version 2)
Quarter: 2017Q1

REPORT INFORMATION
  Report Type: Spontaneous
  Country: BR (occurrence: BR)
  Receive Date: 20170123
  Receipt Date: 20170329
  Transmission Date: 20170428
  Serious: Yes (Life-Threatening, Other)
  Sender: FDA-Public Use
  Company Number: PHHY2017BR005939

PATIENT
  Sex: Female

DRUGS (1)
  1. RISPERIDONE. [Suspect]
     Active Substance: RISPERIDONE
     Indication: PANIC DISORDER
     Dosage: 2 DF, QID
     Route: 048
     Dates: start: 20120229, end: 20160420

REACTIONS (12)
  - Onychoclasis [Unknown]
  - Blindness [Unknown]
  - Nail growth abnormal [Unknown]
  - Weight increased [Unknown]
  - Decreased appetite [Unknown]
  - Skin discolouration [Unknown]
  - Alopecia [Unknown]
  - Incorrect dose administered [Unknown]
  - Poisoning [Unknown]
  - Memory impairment [Unknown]
  - Feeling abnormal [Unknown]
  - Feeling hot [Unknown]
